FAERS Safety Report 18211469 (Version 3)
Quarter: 2020Q4

REPORT INFORMATION
  Report Type: Spontaneous
  Country: US (occurrence: US)
  Receive Date: 20200831
  Receipt Date: 20201118
  Transmission Date: 20210113
  Serious: Yes (Hospitalization)
  Sender: FDA-Public Use
  Company Number: US-NOVEN PHARMACEUTICALS, INC.-2020US004744

PATIENT
  Age: 63 Year
  Sex: Female
  Weight: 57.6 kg

DRUGS (2)
  1. AGX ESTRADIOL FOR MINIVELLE [Suspect]
     Active Substance: ESTRADIOL
     Indication: MENOPAUSAL SYMPTOMS
     Dosage: 0.05 MG, EVERY 4 DAYS
     Route: 062
     Dates: start: 202003
  2. EXCEDRIN EXTRA STRENGTH [Concomitant]
     Active Substance: ACETAMINOPHEN\ASPIRIN\CAFFEINE
     Indication: BONE PAIN

REACTIONS (4)
  - Incorrect product administration duration [Recovered/Resolved]
  - Post procedural complication [Unknown]
  - Pain [Not Recovered/Not Resolved]
  - Therapeutic product ineffective [Not Recovered/Not Resolved]

NARRATIVE: CASE EVENT DATE: 2020
